FAERS Safety Report 16173274 (Version 1)
Quarter: 2019Q2

REPORT INFORMATION
  Report Type: Spontaneous
  Country: RU (occurrence: RU)
  Receive Date: 20190409
  Receipt Date: 20190409
  Transmission Date: 20190711
  Serious: Yes (Hospitalization)
  Sender: FDA-Public Use
  Company Number: RU-TEVA-2019-RU-1035310

PATIENT
  Age: 37 Year
  Sex: Female

DRUGS (1)
  1. MODELL PRO [Suspect]
     Active Substance: DROSPIRENONE\ETHINYL ESTRADIOL
     Dates: start: 201810, end: 201902

REACTIONS (6)
  - Respiration abnormal [Recovering/Resolving]
  - Pulmonary embolism [Recovering/Resolving]
  - Pneumonia [Recovering/Resolving]
  - Hydrothorax [Recovering/Resolving]
  - Dyspnoea [Not Recovered/Not Resolved]
  - Product substitution issue [Unknown]

NARRATIVE: CASE EVENT DATE: 201902
